FAERS Safety Report 5114172-7 (Version None)
Quarter: 2006Q3

REPORT INFORMATION
  Report Type: 
  Country: None (occurrence: None)
  Receive Date: 20060920
  Receipt Date: 20060907
  Transmission Date: 20061208
  Serious: Yes (Hospitalization, Other)
  Sender: FDA-Public Use
  Company Number: 2006109292

PATIENT
  Age: 71 Year
  Sex: Male

DRUGS (6)
  1. PHENYTOIN [Suspect]
     Dosage: INTRAVENOUS
     Route: 042
  2. PHENYTOIN SODIUM [Suspect]
     Dosage: 600 MG, ORAL
     Route: 048
  3. COLACE                       (DOCUSATE SODIUM) [Concomitant]
  4. PANTOPRAZOLE SODIUM [Concomitant]
  5. PERINDOPRIL ERBUMINE [Concomitant]
  6. DESYREL [Concomitant]

REACTIONS (2)
  - ANTICONVULSANT DRUG LEVEL INCREASED [None]
  - DRUG INTERACTION [None]
